FAERS Safety Report 21487601 (Version 1)
Quarter: 2022Q4

REPORT INFORMATION
  Report Type: Spontaneous
  Country: US (occurrence: US)
  Receive Date: 20221020
  Receipt Date: 20221020
  Transmission Date: 20230113
  Serious: Yes (Life-Threatening, Other)
  Sender: FDA-Public Use
  Company Number: US-MLMSERVICE-20221010-3845225-1

PATIENT
  Age: 44 Year
  Sex: Male

DRUGS (3)
  1. DEXAMETHASONE [Suspect]
     Active Substance: DEXAMETHASONE
     Indication: COVID-19 pneumonia
     Route: 065
     Dates: start: 2021, end: 2021
  2. OXYGEN [Concomitant]
     Active Substance: OXYGEN
     Indication: COVID-19 pneumonia
     Route: 065
     Dates: start: 2021
  3. MOLNUPIRAVIR [Concomitant]
     Active Substance: MOLNUPIRAVIR
     Indication: COVID-19 pneumonia
     Route: 065
     Dates: start: 202107

REACTIONS (5)
  - Vascular pseudoaneurysm [Recovering/Resolving]
  - Haemoptysis [Recovered/Resolved]
  - Mucormycosis [Recovering/Resolving]
  - Superinfection fungal [Recovering/Resolving]
  - Mucormycosis [Recovering/Resolving]

NARRATIVE: CASE EVENT DATE: 20210101
